FAERS Safety Report 21534184 (Version 1)
Quarter: 2022Q4

REPORT INFORMATION
  Report Type: Report from Study
  Country: IE (occurrence: IE)
  Receive Date: 20221101
  Receipt Date: 20221101
  Transmission Date: 20230113
  Serious: Yes (Death, Hospitalization, Other)
  Sender: FDA-Public Use
  Company Number: IE-EMA-DD-20220411-216281-124015

PATIENT
  Age: 74 Year
  Sex: Male

DRUGS (237)
  1. DEXAMETHASONE [Suspect]
     Active Substance: DEXAMETHASONE
     Indication: Plasma cell myeloma
     Dosage: 20 MILLIGRAM, QW ROUTE OF ADMINISTRATION : ORAL . , UNIT DOSE : 20 MG  , FREQUENCY TIME : 1 WEEKS ,
     Route: 048
     Dates: start: 20190906, end: 20191228
  2. DEXAMETHASONE [Suspect]
     Active Substance: DEXAMETHASONE
     Indication: Plasma cell myeloma
     Dosage: 20 MILLIGRAM, QW , ROUTE OF ADMINISTRATION : ORAL .UNIT DOSE : 20 MG  , FREQUENCY TIME : 1 WEEKS , D
     Route: 048
     Dates: start: 20180821, end: 20190101
  3. DEXAMETHASONE [Suspect]
     Active Substance: DEXAMETHASONE
     Dosage: 20 MILLIGRAM, QWROUTE OF ADMINISTRATION : ORAL . UNIT DOSE : 20 MG  , FREQUENCY TIME :1 WEEKS   , DU
     Route: 048
     Dates: start: 20191213, end: 20191228
  4. DEXAMETHASONE [Suspect]
     Active Substance: DEXAMETHASONE
     Dosage: 20 MILLIGRAM, QWROUTE OF ADMINISTRATION : ORAL .UNIT DOSE : 20 MG  , FREQUENCY TIME :1 WEEKS   , DUR
     Route: 048
     Dates: start: 20190614, end: 20190830
  5. DEXAMETHASONE [Suspect]
     Active Substance: DEXAMETHASONE
     Dosage: 20 MILLIGRAM, 1/WEEK , UNIT DOSE : 20 MG  , FREQUENCY TIME :1 WEEKS   , DURATION : 134 DAYS
     Dates: start: 20180821, end: 20190101
  6. DEXAMETHASONE [Suspect]
     Active Substance: DEXAMETHASONE
     Dosage: UNK , THERAPY END DATE : NASK
     Dates: start: 20180917
  7. DEXAMETHASONE [Suspect]
     Active Substance: DEXAMETHASONE
     Dosage: UNK , THERAPY END DATE : NASK
     Dates: start: 20181015
  8. DEXAMETHASONE [Suspect]
     Active Substance: DEXAMETHASONE
     Dosage: UNK, THERAPY END DATE : NASK
     Dates: start: 20181210
  9. DEXAMETHASONE [Suspect]
     Active Substance: DEXAMETHASONE
     Dosage: 20 MILLIGRAM, 1/WEEK , UNIT DOSE : 20 MG  , FREQUENCY TIME :1 WEEKS   , DURATION : 35 DAYS
     Dates: start: 20190906, end: 20191010
  10. DEXAMETHASONE [Suspect]
     Active Substance: DEXAMETHASONE
     Dosage: 20 MILLIGRAM, 1/WEEK , UNIT DOSE : 20 MG  , FREQUENCY TIME :1 WEEKS , THERAPY END DATE : NASK
     Dates: start: 20191228
  11. DEXAMETHASONE [Suspect]
     Active Substance: DEXAMETHASONE
     Dosage: 20 MILLIGRAM, 1/WEEK , UNIT DOSE : 20 MG  , FREQUENCY TIME :1 WEEKS   , DURATION : 21 DAYS
     Dates: start: 20181113, end: 20181203
  12. DEXAMETHASONE [Suspect]
     Active Substance: DEXAMETHASONE
     Dosage: 20 MILLIGRAM, 1/WEEK , UNIT DOSE : 20 MG  , FREQUENCY TIME :1 WEEKS   , DURATION :21 DAYS
     Dates: start: 20180917, end: 20181007
  13. DEXAMETHASONE [Suspect]
     Active Substance: DEXAMETHASONE
     Dosage: 20 MILLIGRAM, 1/WEEK, UNIT DOSE : 20 MG  , FREQUENCY TIME :1 WEEKS   , DURATION :114  DAYS
     Dates: start: 20190906, end: 20191228
  14. DEXAMETHASONE [Suspect]
     Active Substance: DEXAMETHASONE
     Dosage: 20 MILLIGRAM, 1/WEEK , UNIT DOSE : 20 MG  , FREQUENCY TIME :1 WEEKS   , DURATION : 16 DAYS
     Dates: start: 20191213, end: 20191228
  15. DEXAMETHASONE [Suspect]
     Active Substance: DEXAMETHASONE
     Dosage: 20 MILLIGRAM, 1/WEEK , UNIT DOSE : 20 MG  , FREQUENCY TIME :1 WEEKS   , DURATION :21 DAYS
     Dates: start: 20181016, end: 20181105
  16. DEXAMETHASONE [Suspect]
     Active Substance: DEXAMETHASONE
     Dosage: 20 MILLIGRAM, 1/WEEK , UNIT DOSE : 20 MG  , FREQUENCY TIME :1 WEEKS   , DURATION :78 DAYS
     Dates: start: 20190614, end: 20190830
  17. DEXAMETHASONE [Suspect]
     Active Substance: DEXAMETHASONE
     Dosage: UNK
  18. DEXAMETHASONE [Suspect]
     Active Substance: DEXAMETHASONE
     Dosage: 20 MILLIGRAM, 1/WEEK , UNIT DOSE : 20 MG  , FREQUENCY TIME :1 WEEKS  , THERAPY END DATE : NASK
     Dates: start: 20190123
  19. DEXAMETHASONE [Suspect]
     Active Substance: DEXAMETHASONE
     Dosage: UNK , THERAPY END DATE : NASK
     Dates: start: 20181112
  20. DEXAMETHASONE [Suspect]
     Active Substance: DEXAMETHASONE
     Dosage: UNK , THERAPY END DATE : NASK
     Dates: start: 20190809
  21. DEXAMETHASONE [Suspect]
     Active Substance: DEXAMETHASONE
     Dosage: 20 MILLIGRAM, 1/WEEK , UNIT DOSE : 20 MG  , FREQUENCY TIME :1 WEEKS   , DURATION :22  DAYS
     Dates: start: 20181211, end: 20190101
  22. REVLIMID [Suspect]
     Active Substance: LENALIDOMIDE
     Indication: Plasma cell myeloma
     Dosage: 25 MILLIGRAM DAILY; 25 MILLIGRAM, QD, DURATION 35 DAYS.
     Dates: start: 20190906, end: 20191010
  23. REVLIMID [Suspect]
     Active Substance: LENALIDOMIDE
     Indication: Plasma cell myeloma
     Dosage: 25 MILLIGRAM DAILY; 25 MILLIGRAM, QD , THERAPY END DATE : NASK
     Dates: start: 20191213
  24. REVLIMID [Suspect]
     Active Substance: LENALIDOMIDE
     Dosage: UNIT DOSE : 4 MILLIGRAM, 1/WEEK , FREQUENCY TIME : 1 WEEK , DURATION : 18 DAYS
     Dates: start: 20190605, end: 20190622
  25. REVLIMID [Suspect]
     Active Substance: LENALIDOMIDE
     Dosage: UNK ROUTE OF ADMINISTRATION : UNKNOWN .
  26. REVLIMID [Suspect]
     Active Substance: LENALIDOMIDE
     Dosage: UNK , THERAPY END DATE : NASK
     Dates: start: 20181210
  27. REVLIMID [Suspect]
     Active Substance: LENALIDOMIDE
     Dosage: 25 MILLIGRAM DAILY; 25 MILLIGRAM, QD, DURATION 21 DAYS.
     Dates: start: 20181015, end: 20181104
  28. REVLIMID [Suspect]
     Active Substance: LENALIDOMIDE
     Dosage: UNIT DOSE : 300 MILLIGRAM, 1/WEEK ROUTE OF ADMINISTRATION : UNKNOWN  , FREQUENCY TIME : 1 WEEKS , DU
     Dates: start: 20191213, end: 20191231
  29. REVLIMID [Suspect]
     Active Substance: LENALIDOMIDE
     Dosage: UNIT DOSE 25 MILLIGRAM , THERAPY END DATE : NASK
     Dates: start: 20190123
  30. REVLIMID [Suspect]
     Active Substance: LENALIDOMIDE
     Dosage: UNK , THERAPY END DATE : NASK
     Dates: start: 20191231
  31. REVLIMID [Suspect]
     Active Substance: LENALIDOMIDE
     Dosage: 25 MILLIGRAM DAILY; 25 MILLIGRAM, QD, DURATION 20 DAYS.
     Dates: start: 20180821, end: 20180909
  32. REVLIMID [Suspect]
     Active Substance: LENALIDOMIDE
     Dosage: 25 MILLIGRAM DAILY; 25 MILLIGRAM, QD , THERAPY END DATE : NASK
     Dates: start: 20191210
  33. REVLIMID [Suspect]
     Active Substance: LENALIDOMIDE
     Dosage: 25 MILLIGRAM DAILY; 25 MILLIGRAM, QD, DURATION 19 DAYS.
     Dates: start: 20191213, end: 20191231
  34. REVLIMID [Suspect]
     Active Substance: LENALIDOMIDE
     Dosage: 25 MILLIGRAM DAILY; 25 MILLIGRAM, QD, DURATION 22 DAYS.
     Dates: start: 20181210, end: 20181231
  35. REVLIMID [Suspect]
     Active Substance: LENALIDOMIDE
     Dosage: 4325 MILLIGRAM
     Route: 065
  36. REVLIMID [Suspect]
     Active Substance: LENALIDOMIDE
     Dosage: UNK
  37. REVLIMID [Suspect]
     Active Substance: LENALIDOMIDE
     Dosage: 25 MILLIGRAM DAILY; 25 MILLIGRAM, QD, DURATION 21 DAYS.
     Dates: start: 20190712, end: 20190801
  38. REVLIMID [Suspect]
     Active Substance: LENALIDOMIDE
     Dosage: 25 MILLIGRAM DAILY; 25 MILLIGRAM, QD, DURATION 21 DAYS.
     Dates: start: 20180917, end: 20181007
  39. REVLIMID [Suspect]
     Active Substance: LENALIDOMIDE
     Dosage: 25 MILLIGRAM DAILY; 25 MILLIGRAM, QD , THERAPY END DATE : NASK
     Dates: start: 20191210
  40. REVLIMID [Suspect]
     Active Substance: LENALIDOMIDE
     Dosage: 4 MILLIGRAM, 1/WEEK ROUTE OF ADMINISTRATION : UNKNOWN , FREQUENCY TIME : 1 WEEKS , THERAPY END DATE
     Dates: start: 20190629
  41. REVLIMID [Suspect]
     Active Substance: LENALIDOMIDE
     Dosage: 25 MILLIGRAM DAILY; 25 MILLIGRAM, QD, DURATION 21 DAYS.
     Dates: start: 20190614, end: 20190704
  42. REVLIMID [Suspect]
     Active Substance: LENALIDOMIDE
     Dosage: 25 MILLIGRAM DAILY; 25 MILLIGRAM, QD, DURATION 21 DAYS.
     Dates: start: 20190809, end: 20190829
  43. REVLIMID [Suspect]
     Active Substance: LENALIDOMIDE
     Dosage: 25 MILLIGRAM DAILY; 25 MILLIGRAM, QD, DURATION 21 DAYS.
     Dates: start: 20181112, end: 20181202
  44. REVLIMID [Suspect]
     Active Substance: LENALIDOMIDE
     Dosage: 300 MILLIGRAM, 1/WEEK ROUTE OF ADMINISTRATION : UNKNOWN , FREQUENCY TIME : 1 WEEKS , THERAPY END DAT
     Dates: start: 20191213
  45. REVLIMID [Suspect]
     Active Substance: LENALIDOMIDE
     Dosage: 25 MILLIGRAM DAILY; 25 MILLIGRAM, QD, DURATION 117 DAYS.
     Dates: start: 20190906, end: 20191231
  46. REVLIMID [Suspect]
     Active Substance: LENALIDOMIDE
     Dosage: 25 MILLIGRAM DAILY; 25 MILLIGRAM, OD ROUTE OF ADMINISTRATION : ORAL .  DURATION 20 DAYS.
     Route: 048
     Dates: start: 20181015, end: 20181104
  47. REVLIMID [Suspect]
     Active Substance: LENALIDOMIDE
     Dosage: 25 MILLIGRAM DAILY; 25 MILLIGRAM, QD  ROUTE OF ADMINISTRATION : ORAL . DURATION 18 DAYS.
     Route: 048
     Dates: start: 20191213, end: 20191231
  48. REVLIMID [Suspect]
     Active Substance: LENALIDOMIDE
     Dosage: 25 MILLIGRAM DAILY; 25 MILLIGRAM, OD ROUTE OF ADMINISTRATION : ORAL . DURATION 20 DAYS.
     Route: 048
     Dates: start: 20190712, end: 20190801
  49. REVLIMID [Suspect]
     Active Substance: LENALIDOMIDE
     Dosage: 25 MILLIGRAM DAILY; 25 MILLIGRAM, OD ROUTE OF ADMINISTRATION : ORAL . DURATION 20 DAYS.
     Route: 048
     Dates: start: 20190614, end: 20190704
  50. REVLIMID [Suspect]
     Active Substance: LENALIDOMIDE
     Dosage: 25 MILLIGRAM DAILY; 25 MILLIGRAM, OD ROUTE OF ADMINISTRATION : ORAL .DURATION 19 DAYS.
     Route: 048
     Dates: start: 20180821, end: 20180909
  51. REVLIMID [Suspect]
     Active Substance: LENALIDOMIDE
     Dosage: 25 MILLIGRAM DAILY; 25 MILLIGRAM, OD ROUTE OF ADMINISTRATION : ORAL . DURATION 116 DAYS.
     Route: 048
     Dates: start: 20190906, end: 20191231
  52. REVLIMID [Suspect]
     Active Substance: LENALIDOMIDE
     Dosage: 25 MILLIGRAM DAILY; 25 MILLIGRAM, OD ROUTE OF ADMINISTRATION : ORAL .DURATION 20 DAYS.
     Route: 048
     Dates: start: 20181112, end: 20181202
  53. REVLIMID [Suspect]
     Active Substance: LENALIDOMIDE
     Dosage: 25 MILLIGRAM DAILY; 25 MILLIGRAM, OD ROUTE OF ADMINISTRATION : ORAL . DURATION 20 DAYS.
     Route: 048
     Dates: start: 20180917, end: 20181007
  54. REVLIMID [Suspect]
     Active Substance: LENALIDOMIDE
     Dosage: 25 MILLIGRAM DAILY; 25 MILLIGRAM, QD ROUTE OF ADMINISTRATION : ORAL . DURATION 20 DAYS.
     Route: 048
     Dates: start: 20191112, end: 20191202
  55. REVLIMID [Suspect]
     Active Substance: LENALIDOMIDE
     Dosage: 25 MILLIGRAM DAILY; 25 MILLIGRAM, OD ROUTE OF ADMINISTRATION : ORAL . DURATION 20 DAYS.
     Route: 048
     Dates: start: 20190809, end: 20190829
  56. REVLIMID [Suspect]
     Active Substance: LENALIDOMIDE
     Dosage: 25 MILLIGRAM DAILY; 25 MILLIGRAM, OD ROUTE OF ADMINISTRATION : ORAL . DURATION 34 DAYS.
     Route: 048
     Dates: start: 20190906, end: 20191010
  57. REVLIMID [Suspect]
     Active Substance: LENALIDOMIDE
     Dosage: 25 MILLIGRAM DAILY; 25 MILLIGRAM, OD ROUTE OF ADMINISTRATION : ORAL . DURATION 21 DAYS.
     Route: 048
     Dates: start: 20181210, end: 20181231
  58. CYCLOPHOSPHAMIDE [Suspect]
     Active Substance: CYCLOPHOSPHAMIDE
     Indication: Plasma cell myeloma
     Dosage: 300 MILLIGRAM DAILY; 300 MILLIGRAM, QD. ROUTE OF ADMINISTRATION : ORAL . DURATION 1 DAY
     Route: 048
     Dates: start: 20190907, end: 20190907
  59. CYCLOPHOSPHAMIDE [Suspect]
     Active Substance: CYCLOPHOSPHAMIDE
     Indication: Plasma cell myeloma
     Dosage: 300 MILLIGRAM DAILY; 300 MILLIGRAM, OD ROUTE OF ADMINISTRATION : ORAL . DURATION 33 DAYS
     Route: 048
     Dates: start: 20190907, end: 20191010
  60. CYCLOPHOSPHAMIDE [Suspect]
     Active Substance: CYCLOPHOSPHAMIDE
     Indication: Plasma cell myeloma
     Dosage: UNIT DOSE 7800 MILLIGRAM ROUTE OF ADMINISTRATION : UNKNOWN . DURATION 347 DAYS
     Dates: start: 2019, end: 20191213
  61. CYCLOPHOSPHAMIDE [Suspect]
     Active Substance: CYCLOPHOSPHAMIDE
     Dosage: UNIT DOSE 36.59 MILLIGRAM ROUTE OF ADMINISTRATION : UNKNOWN . DURATION 346 DAYS
     Dates: start: 2019, end: 20191213
  62. CYCLOPHOSPHAMIDE [Suspect]
     Active Substance: CYCLOPHOSPHAMIDE
     Dosage: 300 MILLIGRAM DAILY; 300 MILLIGRAM, OD ROUTE OF ADMINISTRATION : ORAL . DURATION 33 DAYS
     Route: 048
     Dates: start: 20191010
  63. CYCLOPHOSPHAMIDE [Suspect]
     Active Substance: CYCLOPHOSPHAMIDE
     Dosage: 300 MILLIGRAM DAILY; 300 MILLIGRAM, OD ROUTE OF ADMINISTRATION : ORAL .THERAPY END DATE : NASK
     Route: 048
     Dates: start: 20191213
  64. CYCLOPHOSPHAMIDE [Suspect]
     Active Substance: CYCLOPHOSPHAMIDE
     Dosage: 4 MILLIGRAM, QW ROUTE OF ADMINISTRATION : ORAL   , FREQUENCY TIME : 1 WEEKS , DURATION : 13 DAYS
     Route: 048
     Dates: start: 20191213, end: 20191226
  65. CYCLOPHOSPHAMIDE [Suspect]
     Active Substance: CYCLOPHOSPHAMIDE
     Dosage: 300 MILLIGRAM, QW ROUTE OF ADMINISTRATION : ORAL  , FREQUENCY TIME : 1 WEEKS  , DURATION :  15 DAYS
     Route: 048
     Dates: start: 20191213, end: 20191228
  66. CYCLOPHOSPHAMIDE [Suspect]
     Active Substance: CYCLOPHOSPHAMIDE
     Dosage: 7800 MILLIGRAM ROUTE OF ADMINISTRATION : UNKNOWN .THERAPY END DATE : NASK
     Dates: start: 20191213
  67. CYCLOPHOSPHAMIDE [Suspect]
     Active Substance: CYCLOPHOSPHAMIDE
     Dosage: 11100 MILLIGRAM ROUTE OF ADMINISTRATION : UNKNOWN  , THERAPY END DATE : NASK
     Dates: end: 20191213
  68. CYCLOPHOSPHAMIDE [Suspect]
     Active Substance: CYCLOPHOSPHAMIDE
     Dosage: 300 MILLIGRAM DAILY; 300 MILLIGRAM, OD ROUTE OF ADMINISTRATION : ORAL .THERAPY START DATE : NASK
     Route: 048
     Dates: end: 20191213
  69. CYCLOPHOSPHAMIDE [Suspect]
     Active Substance: CYCLOPHOSPHAMIDE
     Dosage: 11100 MILLIGRAM ROUTE OF ADMINISTRATION : UNKNOWN .THERAPY END DATE : NASK
     Dates: start: 20191213
  70. CYCLOPHOSPHAMIDE [Suspect]
     Active Substance: CYCLOPHOSPHAMIDE
     Dosage: 7800 MILLIGRAM ROUTE OF ADMINISTRATION : UNKNOWN ., DURATION : 346 DAYS
     Dates: start: 2019, end: 20191213
  71. CYCLOPHOSPHAMIDE [Suspect]
     Active Substance: CYCLOPHOSPHAMIDE
     Dosage: 11100 MILLIGRAM , ROUTE OF ADMINISTRATION : UNKNOWN .
  72. CYCLOPHOSPHAMIDE [Suspect]
     Active Substance: CYCLOPHOSPHAMIDE
     Dosage: 36.595 MILLIGRAM ROUTE OF ADMINISTRATION : UNKNOWN .THERAPY START DATE : NASK
     Dates: end: 20191213
  73. CYCLOPHOSPHAMIDE [Suspect]
     Active Substance: CYCLOPHOSPHAMIDE
     Dosage: 300 MILLIGRAM, 1/WEEK , FREQUENCY TIME : 1 WEEKS ,THERAPY END DATE : NASK
     Dates: start: 20191010
  74. CYCLOPHOSPHAMIDE [Suspect]
     Active Substance: CYCLOPHOSPHAMIDE
     Dosage: 300 MILLIGRAM, 1/WEEK , THERAPY END DATE : NASK , FREQUENCY TIME : 1 WEEKS
     Dates: start: 2019
  75. CYCLOPHOSPHAMIDE [Suspect]
     Active Substance: CYCLOPHOSPHAMIDE
     Dosage: 300 MILLIGRAM, 1/WEEK , THERAPY END DATE : NASK , FREQUENCY TIME : 1 WEEKS
     Dates: start: 20191213
  76. CYCLOPHOSPHAMIDE [Suspect]
     Active Substance: CYCLOPHOSPHAMIDE
     Dosage: 36.595 MILLIGRAM ROUTE OF ADMINISTRATION : UNKNOWN .THERAPY END DATE : NASK
     Dates: start: 2019
  77. CYCLOPHOSPHAMIDE [Suspect]
     Active Substance: CYCLOPHOSPHAMIDE
     Dosage: 300 MILLIGRAM DAILY; 300 MILLIGRAM, QD , DURATION : 1 DAY
     Dates: start: 20190907, end: 20190907
  78. CYCLOPHOSPHAMIDE [Suspect]
     Active Substance: CYCLOPHOSPHAMIDE
     Dosage: 300 MILLIGRAM, 1/WEEK ,  FREQUENCY TIME : 1 WEEKS  , DURATION : 18 DAYS
     Dates: start: 20191213, end: 20191228
  79. CYCLOPHOSPHAMIDE [Suspect]
     Active Substance: CYCLOPHOSPHAMIDE
     Dosage: 7800 MILLIGRAM  ROUTE OF ADMINISTRATION : UNKNOWN  , THERAPY END DATE : NASK
     Dates: start: 20191203
  80. CYCLOPHOSPHAMIDE [Suspect]
     Active Substance: CYCLOPHOSPHAMIDE
     Dosage: 300 MILLIGRAM, 1/WEEK , FREQUENCY TIME : 1 WEEKS  , DURATION : 16 DAYS
     Dates: start: 20191213, end: 20191228
  81. CYCLOPHOSPHAMIDE [Suspect]
     Active Substance: CYCLOPHOSPHAMIDE
     Dosage: 4 MILLIGRAM, 1/WEEK ,FREQUENCY TIME : 1 WEEKS   , DURATION : 14 DAYS
     Dates: start: 20191213, end: 20191226
  82. CYCLOPHOSPHAMIDE [Suspect]
     Active Substance: CYCLOPHOSPHAMIDE
     Dosage: 300 MILLIGRAM DAILY; 300 MILLIGRAM, QD
     Dates: start: 20190907, end: 20190907
  83. CYCLOPHOSPHAMIDE [Suspect]
     Active Substance: CYCLOPHOSPHAMIDE
     Dosage: 300 MILLIGRAM, 1/WEEK , THERAPY START DATE : NASK , FREQUENCY TIME : 1 WEEKS
     Dates: end: 2019
  84. CYCLOPHOSPHAMIDE [Suspect]
     Active Substance: CYCLOPHOSPHAMIDE
     Dosage: 300 MILLIGRAM DAILY; 300 MILLIGRAM, QD , THERAPY END DATE : NASK
     Dates: start: 20191010
  85. CYCLOPHOSPHAMIDE [Suspect]
     Active Substance: CYCLOPHOSPHAMIDE
     Dosage: 300 MILLIGRAM, 1/WEEK , FREQUENCY TIME : 1 WEEKS  , DURATION : 346 DAYS
     Dates: start: 2019, end: 20191213
  86. CYCLOPHOSPHAMIDE [Suspect]
     Active Substance: CYCLOPHOSPHAMIDE
     Dosage: UNK , THERAPY END DATE : NASK
     Dates: start: 20181015
  87. CYCLOPHOSPHAMIDE [Suspect]
     Active Substance: CYCLOPHOSPHAMIDE
     Dosage: 36.595 MILLIGRAM , ROUTE OF ADMINISTRATION : UNKNOWN .THERAPY START DATE : NASK
     Dates: end: 2019
  88. CYCLOPHOSPHAMIDE [Suspect]
     Active Substance: CYCLOPHOSPHAMIDE
     Dosage: 36.595 MILLIGRAM , ROUTE OF ADMINISTRATION : UNKNOWN .THERAPY END DATE : NASK
     Dates: start: 20191213
  89. CYCLOPHOSPHAMIDE [Suspect]
     Active Substance: CYCLOPHOSPHAMIDE
     Dosage: 11100 MILLIGRAM , ROUTE OF ADMINISTRATION : UNKNOWN . , THERAPY END DATE : NASK
     Dates: start: 20191213
  90. CYCLOPHOSPHAMIDE [Suspect]
     Active Substance: CYCLOPHOSPHAMIDE
     Dosage: FREQUENCY TEXT: QD 300 MILLIGRAM ,  FREQUENCY TIME : 1 WEEKS  , DURATION :  15 DAYS
     Dates: start: 20191213, end: 20191228
  91. CYCLOPHOSPHAMIDE [Suspect]
     Active Substance: CYCLOPHOSPHAMIDE
     Dosage: FREQUENCY TEXT: QD 300 MILLIGRAM ,  FREQUENCY TIME : 1 DAY  , DURATION :  33 DAYS
     Dates: start: 20190907, end: 20191010
  92. IXAZOMIB [Suspect]
     Active Substance: IXAZOMIB
     Indication: Plasma cell myeloma
     Dosage: UNIT DOSE : 4 MILLIGRAM ROUTE OF ADMINISTRATION : ORAL , FREQUENCY TIME : 1 WEEKS , DURATION :  13 D
     Route: 048
     Dates: start: 20191213, end: 20191226
  93. IXAZOMIB [Suspect]
     Active Substance: IXAZOMIB
     Indication: Plasma cell myeloma
     Dosage: UNIT DOSE : 4 MILLIGRAM, 1/WEEK , FREQUENCY TIME : 1 WEEKS  , DURATION :  44 DAYS
     Dates: start: 20190620, end: 20190802
  94. IXAZOMIB [Suspect]
     Active Substance: IXAZOMIB
     Indication: Plasma cell myeloma
     Dosage: UNIT DOSE: 4 MILLIGRAM, 1/WEEK , FREQUENCY TIME : 1 WEEKS  , THERAPY END DATE : NASK
     Dates: start: 20190713
  95. IXAZOMIB [Suspect]
     Active Substance: IXAZOMIB
     Dosage: 4 MILLIGRAM, 1/WEEK ,  FREQUENCY TIME : 1 WEEKS , DURATION :  15 DAYS
     Dates: start: 20190810, end: 20190824
  96. IXAZOMIB [Suspect]
     Active Substance: IXAZOMIB
     Dosage: 4 MILLIGRAM, 1/WEEK ,  FREQUENCY TIME :1 WEEKS   , DURATION :  15 DAYS
     Dates: start: 20190629, end: 20190713
  97. IXAZOMIB [Suspect]
     Active Substance: IXAZOMIB
     Dosage: 4 MILLIGRAM, 1/WEEK ,  FREQUENCY TIME :1 WEEKS   , DURATION :  7 DAYS
     Dates: start: 20190803, end: 20190809
  98. IXAZOMIB [Suspect]
     Active Substance: IXAZOMIB
     Dosage: 4 MILLIGRAM, 1/WEEK ,  FREQUENCY TIME :1 WEEKS   , DURATION :  8 DAYS
     Dates: start: 20190615, end: 20190622
  99. IXAZOMIB [Suspect]
     Active Substance: IXAZOMIB
     Dosage: 4 MILLIGRAM, 1/WEEK ,  FREQUENCY TIME : 1 WEEKS  , DURATION :  5 DAYS
     Dates: start: 20190615, end: 20190619
  100. IXAZOMIB [Suspect]
     Active Substance: IXAZOMIB
     Dosage: 4 MILLIGRAM, 1/WEEK ,  FREQUENCY TIME : 1 WEEKS  , DURATION :  195 DAYS
     Dates: start: 20190615, end: 20191226
  101. IXAZOMIB [Suspect]
     Active Substance: IXAZOMIB
     Dosage: 4 MILLIGRAM, 1/WEEK ,  FREQUENCY TIME : 1 WEEKS  , DURATION :  8 DAYS
     Dates: start: 20190615, end: 20190622
  102. IXAZOMIB [Suspect]
     Active Substance: IXAZOMIB
     Dosage: 4 MILLIGRAM, 1/WEEK ,  FREQUENCY TIME :  1 WEEKS
  103. IXAZOMIB [Suspect]
     Active Substance: IXAZOMIB
     Dosage: 47.5 MILLIGRAM, 1/WEEK , FREQUENCY TIME : 1 WEEKS  , THERAPY END DATE : NASK
     Dates: start: 20190615
  104. IXAZOMIB [Suspect]
     Active Substance: IXAZOMIB
     Dosage: UNK , THERAPY END DATE : NASK
     Dates: start: 20191231
  105. IXAZOMIB [Suspect]
     Active Substance: IXAZOMIB
     Dosage: UNK
     Route: 065
  106. IXAZOMIB [Suspect]
     Active Substance: IXAZOMIB
     Dosage: UNK , ROUTE OF ADMINISTRATION : UNKNOWN .
  107. IXAZOMIB [Suspect]
     Active Substance: IXAZOMIB
     Dosage: 800 MILLIGRAM , THERAPY END DATE : NASK
     Dates: start: 20191231
  108. IXAZOMIB [Suspect]
     Active Substance: IXAZOMIB
     Dosage: 4 MILLIGRAM, 1/WEEK , UNIT DOSE : 4 MG , FREQUENCY TIME : 1 WEEKS , DURATION : 15 DAYS
     Dates: start: 20190629, end: 20190713
  109. IXAZOMIB [Suspect]
     Active Substance: IXAZOMIB
     Dosage: 4 MILLIGRAM, 1/WEEK ,  FREQUENCY TIME : 1 WEEKS  , DURATION :  7 DAYS
     Dates: start: 20190803, end: 20190809
  110. IXAZOMIB [Suspect]
     Active Substance: IXAZOMIB
     Dosage: 4 MILLIGRAM, 1/WEEK ,  FREQUENCY TIME :1 WEEKS   , DURATION :  14 DAYS
     Dates: start: 20191213, end: 20191226
  111. IXAZOMIB [Suspect]
     Active Substance: IXAZOMIB
     Dosage: 4 MILLIGRAM, 1/WEEK ,  FREQUENCY TIME :  1 WEEKS  , DURATION :  15 DAYS
     Dates: start: 20190810, end: 20190824
  112. IXAZOMIB [Suspect]
     Active Substance: IXAZOMIB
     Dosage: 800 MILLIGRAM
     Route: 065
  113. IXAZOMIB [Suspect]
     Active Substance: IXAZOMIB
     Dosage: 4 MILLIGRAM, 1/WEEK ,  FREQUENCY TIME :  1WEEKS  , DURATION :  44 DAYS
     Dates: start: 20190620, end: 20190802
  114. IXAZOMIB [Suspect]
     Active Substance: IXAZOMIB
     Dosage: 20 MILLIGRAM, 1/WEEK ,  FREQUENCY TIME :  1 WEEKS  , DURATION : 16 DAYS
     Dates: start: 20191213, end: 20191228
  115. IXAZOMIB [Suspect]
     Active Substance: IXAZOMIB
     Dosage: UNK ROUTE OF ADMINISTRATION : UNKNOWN .
     Route: 065
  116. IXAZOMIB [Suspect]
     Active Substance: IXAZOMIB
     Dosage: 4 MILLIGRAM, 1/WEEK ,  FREQUENCY TIME : 1 WEEKS   , DURATION : 1 DAYS
     Dates: start: 20190615, end: 20190615
  117. AUGMENTIN [Concomitant]
     Active Substance: AMOXICILLIN\CLAVULANATE POTASSIUM
     Indication: Product used for unknown indication
     Dosage: 1.2 GRAM  ,DURATION : 2 DAYS
     Dates: start: 20190102, end: 20190103
  118. AUGMENTIN [Concomitant]
     Active Substance: AMOXICILLIN\CLAVULANATE POTASSIUM
     Dosage: 625 MILLIGRAM, DURATION : 4 DAYS
     Dates: start: 20190103, end: 20190106
  119. Decapeptyl [Concomitant]
     Indication: Prostate cancer
     Dosage: UNK ROUTE OF ADMINISTRATION : UNKNOWN .
  120. Decapeptyl [Concomitant]
     Dosage: 45 MILLIGRAM DAILY; 45 MILLIGRAM, QD ROUTE OF ADMINISTRATION : UNKNOWN .
     Dates: start: 20190515
  121. Decapeptyl [Concomitant]
     Dosage: 18.24 MILLIGRAM ROUTE OF ADMINISTRATION : UNKNOWN .
  122. Decapeptyl [Concomitant]
     Dosage: 200 MILLIGRAM ROUTE OF ADMINISTRATION : UNKNOWN .DURATION : 6 DAYS
     Dates: start: 20190109, end: 20190114
  123. PENTAZOCINE LACTATE [Concomitant]
     Active Substance: PENTAZOCINE LACTATE
     Indication: Malnutrition
     Dosage: UNK UNK, BID ,  FREQUENCY TIME : 1 DAY  , DURATION :  9 DAYS
     Dates: start: 20191003, end: 20191011
  124. PENTAZOCINE LACTATE [Concomitant]
     Active Substance: PENTAZOCINE LACTATE
     Dosage: UNK UNK, QD,  FREQUENCY TIME : 1 DAY  , DURATION :  10 DAYS
     Dates: start: 20191020, end: 20191029
  125. PENTAZOCINE LACTATE [Concomitant]
     Active Substance: PENTAZOCINE LACTATE
     Dosage: UNK UNK, QD ,  FREQUENCY TIME : 1 DAY  , DURATION :  10 DAYS
     Dates: start: 20191020, end: 20191029
  126. PENTAZOCINE LACTATE [Concomitant]
     Active Substance: PENTAZOCINE LACTATE
     Dosage: UNK UNK, QD ROUTE OF ADMINISTRATION : UNKNOWN . FREQUENCY TIME : 1 DAY  , DURATION :  9 DAYS
     Dates: start: 20191003, end: 20191011
  127. PENTAZOCINE LACTATE [Concomitant]
     Active Substance: PENTAZOCINE LACTATE
     Dosage: UNK UNK, QD ,  FREQUENCY TIME : 1 DAY  , DURATION :  1DAY
     Dates: start: 20191020, end: 20191020
  128. PENTAZOCINE LACTATE [Concomitant]
     Active Substance: PENTAZOCINE LACTATE
     Dosage: UNK , ROUTE OF ADMINISTRATION : UNKNOWN .DURATION : 9 DAYS
     Dates: start: 20191003, end: 20191011
  129. TINZAPARIN [Concomitant]
     Active Substance: TINZAPARIN
     Indication: Prophylaxis
     Dosage: 10000 INTERNATIONAL UNIT , FREQUENCY TIME : 1 DAY
     Dates: start: 20190110
  130. TINZAPARIN [Concomitant]
     Active Substance: TINZAPARIN
     Dosage: UNK UNK, QD , DURATION : 1 DAY
     Dates: start: 20190110
  131. PIPERACILLIN SODIUM\TAZOBACTAM SODIUM [Concomitant]
     Active Substance: PIPERACILLIN SODIUM\TAZOBACTAM SODIUM
     Indication: Product used for unknown indication
     Dosage: 4.5 GRAM, QD , DURATION : 5 DAYS
     Dates: start: 20190106, end: 20190110
  132. PANTOPRAZOLE [Concomitant]
     Active Substance: PANTOPRAZOLE
     Indication: Prophylaxis
     Dosage: 20 MILLIGRAM DAILY; 20 MILLIGRAM, QD , DURATION : 287 DAYS
     Dates: start: 20190102, end: 20191015
  133. PANTOPRAZOLE [Concomitant]
     Active Substance: PANTOPRAZOLE
     Indication: Prophylaxis
     Dosage: 80 MILLIGRAM DAILY; 80 MILLIGRAM, QD
     Dates: start: 20191016
  134. PANTOPRAZOLE [Concomitant]
     Active Substance: PANTOPRAZOLE
     Dosage: 20 MILLIGRAM DAILY; 20 MILLIGRAM, QD , DURATION ; 1 DAY
     Dates: start: 20190102, end: 20190102
  135. PANTOPRAZOLE [Concomitant]
     Active Substance: PANTOPRAZOLE
     Dosage: UNK, QD , FREQUENCY TIME : 1 DAY  , DURATION :  1 DAY
     Dates: start: 20191020, end: 20191020
  136. PANTOPRAZOLE [Concomitant]
     Active Substance: PANTOPRAZOLE
     Dosage: 80 MILLIGRAM DAILY; 80 MILLIGRAM, QD
     Dates: start: 20191015
  137. PANTOPRAZOLE [Concomitant]
     Active Substance: PANTOPRAZOLE
     Dosage: 20 MILLIGRAM DAILY; 20 MILLIGRAM, QD . DURATION : 287 DAYS
     Dates: start: 20190102, end: 20191015
  138. CHOLECALCIFEROL [Concomitant]
     Active Substance: CHOLECALCIFEROL
     Indication: Malnutrition
     Dosage: UNK UNK, BID , FREQUENCY TIME : 1 DAY  , DURATION :  246 DAYS
     Dates: start: 20190212, end: 20191015
  139. CHOLECALCIFEROL [Concomitant]
     Active Substance: CHOLECALCIFEROL
     Indication: Bone disorder
     Dosage: UNK UNK, TID ,FREQUENCY TIME :   1 DAYS, DURATION :  40 DAYS
     Dates: start: 20190103, end: 20190211
  140. CHOLECALCIFEROL [Concomitant]
     Active Substance: CHOLECALCIFEROL
     Indication: Prophylaxis
     Dosage: UNK, QD , FREQUENCY TIME : 1 DAY  , DURATION :  14 DAYS
     Dates: start: 20191016, end: 20191029
  141. CHOLECALCIFEROL [Concomitant]
     Active Substance: CHOLECALCIFEROL
     Dosage: UNK UNK, BID , FREQUENCY TIME : 1 DAY  , DURATION :  282 DAYS
     Dates: start: 20190103, end: 20191011
  142. CHOLECALCIFEROL [Concomitant]
     Active Substance: CHOLECALCIFEROL
     Dosage: UNK UNK, BID ROUTE OF ADMINISTRATION : ORAL ., FREQUENCY TIME :  1 DAY  , DURATION :  281 DAYS
     Route: 048
     Dates: start: 20190103, end: 20191011
  143. DOXYCYCLINE [Concomitant]
     Active Substance: DOXYCYCLINE
     Indication: Product used for unknown indication
     Dosage: 200 MILLIGRAM, BID , UNIT DOSE : 400 MG   , FREQUENCY TIME : 1 DAY   , DURATION :  6 DAYS
     Dates: start: 20190109, end: 20190114
  144. CALCIUM ACETATE [Concomitant]
     Active Substance: CALCIUM ACETATE
     Indication: Malnutrition
     Dosage: UNK, BID , FREQUENCY TIME : 1 DAY , DURATION : 9 DAYS
     Dates: start: 20191003, end: 20191011
  145. CALCIUM ACETATE [Concomitant]
     Active Substance: CALCIUM ACETATE
     Dosage: UNK UNK, QD , FREQUENCY TIME : 1 DAY , DURATION : 1 DAY
     Dates: start: 20191020, end: 20191020
  146. ZOLEDRONIC ACID [Concomitant]
     Active Substance: ZOLEDRONIC ACID
     Indication: Prophylaxis
     Dosage: 4 MILLIGRAM DAILY; 4 MILLIGRAM, OD , ROUTE OF ADMINISTRATION : INTRAVENOUS DRIP .THERAPY END DATE :
     Route: 041
     Dates: start: 20181106
  147. LIDOCAINE [Concomitant]
     Active Substance: LIDOCAINE
     Indication: Tongue coated
     Dosage: 90 MILLIGRAM DAILY; 90 MILLIGRAM, QD , DURATION : 35 DAYS
     Dates: start: 20191116, end: 20191220
  148. LIDOCAINE [Concomitant]
     Active Substance: LIDOCAINE
     Indication: Malnutrition
     Dosage: 30 MILLILITER, QD
     Dates: start: 20191116, end: 20191220
  149. LIDOCAINE [Concomitant]
     Active Substance: LIDOCAINE
     Dosage: UNK UNK, QD
     Dates: start: 20190103, end: 20191011
  150. INFLUENZA VIRUS VACCINE [Concomitant]
     Active Substance: INFLUENZA VIRUS VACCINE
     Indication: Prophylaxis
     Dosage: 1 DOSAGE FORMS DAILY; 1 DOSAGE FORM (1 AMPULE), OD, ROUTE OF ADMINISTRATION : UNKNOWN .DURATION 1 DA
     Dates: start: 20191112, end: 20191112
  151. INNOHEP [Concomitant]
     Active Substance: TINZAPARIN SODIUM
     Indication: Prophylaxis
     Dosage: 10000 INTERNATIONAL UNIT, OD ROUTE OF ADMINISTRATION : SUBCUTANEOUS . , FREQUENCY TIME : 1 DAY , THE
     Route: 058
     Dates: start: 20190110
  152. TRIMETHOPRIM [Concomitant]
     Active Substance: TRIMETHOPRIM
     Indication: Antifungal prophylaxis
     Dosage: 480 MILLIGRAM DAILY; 480 MILLIGRAM, QD , ROUTE OF ADMINISTRATION : ORAL  , THERAPY END DATE : NASK
     Route: 048
     Dates: start: 20191011
  153. TRIMETHOPRIM [Concomitant]
     Active Substance: TRIMETHOPRIM
     Indication: Prophylaxis
     Dosage: 10 MILLILITER , ROUTE OF ADMINISTRATION : ORAL .
     Route: 048
     Dates: start: 20191011
  154. TRIMETHOPRIM [Concomitant]
     Active Substance: TRIMETHOPRIM
     Indication: Prophylaxis
     Dosage: 20 ML DAILY; 20 MILLILITER, QD, DURATION : 287 DAY
     Dates: start: 20190102, end: 20191015
  155. TRIMETHOPRIM [Concomitant]
     Active Substance: TRIMETHOPRIM
     Indication: Antifungal prophylaxis
     Dosage: UNK , ROUTE OF ADMINISTRATION : UNKNOWN .
     Dates: start: 20191011
  156. TRIMETHOPRIM [Concomitant]
     Active Substance: TRIMETHOPRIM
     Dosage: 10 MILLILITER
     Dates: start: 20191011
  157. TRIMETHOPRIM [Concomitant]
     Active Substance: TRIMETHOPRIM
     Dosage: 480 MILLIGRAM DAILY; 480 MILLIGRAM, QD , DURATION : 364 DAYS
     Dates: start: 20180817, end: 20190815
  158. TRIMETHOPRIM [Concomitant]
     Active Substance: TRIMETHOPRIM
     Dosage: 480 MILLIGRAM, QD , FREQUENCY TIME : 1 DAY
  159. TRIMETHOPRIM [Concomitant]
     Active Substance: TRIMETHOPRIM
     Dosage: 480 MILLIGRAM DAILY; 480 MILLIGRAM, QD
     Dates: start: 20191011
  160. ZOLPIDEM [Concomitant]
     Active Substance: ZOLPIDEM TARTRATE
     Indication: Prophylaxis
     Dosage: UNIT DOSE : 10 MILLIGRAM ROUTE OF ADMINISTRATION : ORAL USE ., DURATION : 440 DAYS
     Route: 048
     Dates: start: 20180816, end: 20191029
  161. ZOLPIDEM [Concomitant]
     Active Substance: ZOLPIDEM TARTRATE
     Indication: Prophylaxis
     Dosage: UNIT DOSE :10 MILLIGRAM , DURATION : 11 DAYS
     Dates: start: 20180819, end: 20180829
  162. ZOLPIDEM [Concomitant]
     Active Substance: ZOLPIDEM TARTRATE
     Dosage: UNIT DOSE : 10   MILLIGRAM , DURATION : 14 DAYS
     Dates: start: 20180816, end: 20180829
  163. VITAMIN D NOS [Concomitant]
     Active Substance: VITAMIN D NOS
     Indication: Malnutrition
     Dosage: UNK UNK, BID ,  FREQUENCY TIME :  DAY  , DURATION :  282 DAYS
     Dates: start: 20190103, end: 20191011
  164. VITAMIN D NOS [Concomitant]
     Active Substance: VITAMIN D NOS
     Indication: Malnutrition
     Dosage: UNK UNK, QD ,  FREQUENCY TIME : 1 DAY  , DURATION : 313 DAY
     Dates: start: 20190103, end: 20191111
  165. VITAMIN D NOS [Concomitant]
     Active Substance: VITAMIN D NOS
     Dosage: UNK UNK, QD,  FREQUENCY TIME : 1 DAY  , DURATION :  301DAYS
     Dates: start: 20190102, end: 20191029
  166. VITAMIN D NOS [Concomitant]
     Active Substance: VITAMIN D NOS
     Dosage: UNK UNK, QD ,  FREQUENCY TIME :1 DAY   , DURATION :  28 DAYS
     Dates: start: 20190102, end: 20190129
  167. VITAMIN D NOS [Concomitant]
     Active Substance: VITAMIN D NOS
     Dosage: UNK UNK, QD , FREQUENCY TIME : 1 DAY
     Dates: start: 20190104
  168. VITAMIN D NOS [Concomitant]
     Active Substance: VITAMIN D NOS
     Dosage: UNK UNK, BID ,  FREQUENCY TIME :  1 DAY  , DURATION :  301 DAYS
     Dates: start: 20190102, end: 20191029
  169. VITAMIN D NOS [Concomitant]
     Active Substance: VITAMIN D NOS
     Dosage: UNK UNK, BID , FREQUENCY TIME : 1 DAYS
     Dates: start: 20190104
  170. VITAMIN D NOS [Concomitant]
     Active Substance: VITAMIN D NOS
     Dosage: UNK, QD ROUTE OF ADMINISTRATION : ORAL . FREQUENCY TIME :1 DAY   , DURATION :  300 DAYS
     Route: 048
     Dates: start: 20190102, end: 20191029
  171. VITAMIN D NOS [Concomitant]
     Active Substance: VITAMIN D NOS
     Dosage: UNK UNK, BID ROUTE OF ADMINISTRATION : ORAL . FREQUENCY TIME :1 DAY   , DURATION : 281 DAYS
     Route: 048
     Dates: start: 20190103, end: 20191011
  172. VITAMIN D NOS [Concomitant]
     Active Substance: VITAMIN D NOS
     Dosage: UNK UNK, QD ROUTE OF ADMINISTRATION : UNKNOWN . ,  FREQUENCY TIME : 1 DAY  , DURATION :  27 DAYS
     Dates: start: 20190102, end: 20190129
  173. AMLODIPINE [Concomitant]
     Active Substance: AMLODIPINE BESYLATE
     Indication: Hypertension
     Dosage: 10 MILLIGRAM DAILY; 10 MILLIGRAM, QD ROUTE OF ADMINISTRATION : ORAL USE . DURATION 1 DAY
     Route: 048
     Dates: start: 20191204, end: 20191204
  174. CALCIUM\CHOLECALCIFEROL [Concomitant]
     Active Substance: CALCIUM\CHOLECALCIFEROL
     Indication: Bone disorder
     Dosage: 4 DOSAGE FORM, BID ROUTE OF ADMINISTRATION : ORAL  , UNIT DOSE : 8 DF , FREQUENCY TIME : 1 DAY , DUR
     Route: 048
     Dates: start: 20190103, end: 20191011
  175. CALCIUM\CHOLECALCIFEROL [Concomitant]
     Active Substance: CALCIUM\CHOLECALCIFEROL
     Indication: Prophylaxis
     Dates: start: 20190103, end: 20190211
  176. CALCIUM\CHOLECALCIFEROL [Concomitant]
     Active Substance: CALCIUM\CHOLECALCIFEROL
     Indication: Prophylaxis
     Dates: start: 20190103, end: 20191011
  177. CALCIUM\CHOLECALCIFEROL [Concomitant]
     Active Substance: CALCIUM\CHOLECALCIFEROL
     Indication: Malnutrition
     Dates: start: 20191016, end: 20191029
  178. CALCIUM\CHOLECALCIFEROL [Concomitant]
     Active Substance: CALCIUM\CHOLECALCIFEROL
     Indication: Bone disorder
     Dates: start: 20190212, end: 20191015
  179. CALCIUM\CHOLECALCIFEROL [Concomitant]
     Active Substance: CALCIUM\CHOLECALCIFEROL
     Indication: Bone disorder
     Dates: start: 20190103, end: 20190211
  180. CALCIUM\CHOLECALCIFEROL [Concomitant]
     Active Substance: CALCIUM\CHOLECALCIFEROL
     Dosage: UNK UNK, QD
     Dates: start: 20190104
  181. CALCIUM\CHOLECALCIFEROL [Concomitant]
     Active Substance: CALCIUM\CHOLECALCIFEROL
     Dosage: UNK UNK, QD
     Dates: start: 201901
  182. CALCIUM\CHOLECALCIFEROL [Concomitant]
     Active Substance: CALCIUM\CHOLECALCIFEROL
     Dosage: UNK UNK, BID
     Dates: start: 20190212, end: 20191015
  183. SULFAMETHOXAZOLE\TRIMETHOPRIM [Concomitant]
     Active Substance: SULFAMETHOXAZOLE\TRIMETHOPRIM
     Indication: Prophylaxis
     Dosage: 10 ML DAILY; 10 MILLILITER, QD , ROUTE OF ADMINISTRATION : ORAL .THERAPY END DATE  NASK
     Route: 048
     Dates: start: 20191011
  184. SULFAMETHOXAZOLE\TRIMETHOPRIM [Concomitant]
     Active Substance: SULFAMETHOXAZOLE\TRIMETHOPRIM
     Dates: start: 20190102, end: 20191015
  185. BUDESONIDE [Concomitant]
     Active Substance: BUDESONIDE
     Indication: Chronic obstructive pulmonary disease
     Dosage: 1 MILLIGRAM DAILY; 1 MILLIGRAM, QD ROUTE OF ADMINISTRATION : ORAL .
     Route: 048
     Dates: start: 20200107
  186. CALCITONIN [Concomitant]
     Active Substance: CALCITONIN
     Indication: Malnutrition
     Dosage: UNK , DURATION :10 DAYS
     Dates: start: 20191020, end: 20191029
  187. CALCITONIN [Concomitant]
     Active Substance: CALCITONIN
     Dosage: UNK UNK, BID , FREQUENCY TIME : 1 DAY , DURATION : 282 DAYS
     Dates: start: 20190103, end: 20191011
  188. CALCITONIN [Concomitant]
     Active Substance: CALCITONIN
     Dosage: UNK, QD  , FREQUENCY TIME : 1 DAY , DURATION : 255 DAYS
     Dates: start: 20190130, end: 20191011
  189. CALCITONIN [Concomitant]
     Active Substance: CALCITONIN
     Dosage: UNK UNK, QD , FREQUENCY TIME : 1 DAY , DURATION : 282 DAYS
     Dates: start: 20190103, end: 20191011
  190. CALCITONIN [Concomitant]
     Active Substance: CALCITONIN
     Dosage: UNK UNK, BID , FREQUENCY TIME : 1 DAY , DURATION : 255 DAYS
     Dates: start: 20190130, end: 20191011
  191. UNSPECIFIED INGREDIENT [Concomitant]
     Active Substance: UNSPECIFIED INGREDIENT
     Indication: Product used for unknown indication
     Dosage: UNK , DURATION : 6 DAYS
     Dates: start: 20190107, end: 20190112
  192. ENOXAPARIN SODIUM [Concomitant]
     Active Substance: ENOXAPARIN SODIUM
     Indication: Product used for unknown indication
     Dosage: 40 MILLIGRAM DAILY; 40 MILLIGRAM, QD , DURATION : 7 DAYS
     Dates: start: 20190103, end: 20190109
  193. CALCITONIN SALMON [Concomitant]
     Active Substance: CALCITONIN SALMON
     Indication: Malnutrition
     Dosage: UNK, BID ROUTE OF ADMINISTRATION : ORAL , FREQUENCY TIME : 1 DAY , DURATION : 281 DAYS
     Route: 048
     Dates: start: 20190103, end: 20191011
  194. MAGNESIUM [Concomitant]
     Active Substance: MAGNESIUM
     Indication: Product used for unknown indication
     Dosage: UNK , DURATION : 8 DAYS
     Dates: start: 20190105, end: 20190112
  195. FORTICAL [Concomitant]
     Active Substance: CALCITONIN SALMON
     Indication: Product used for unknown indication
     Dosage: UNK ROUTE OF ADMINISTRATION : UNKNOWN .
  196. Fortal [Concomitant]
     Indication: Malnutrition
     Dosage: UNK UNK, BID , FREQUENCY TIME : 1 DAY , DURATION : 9 DAYS
     Dates: start: 20191003, end: 20191011
  197. Fortal [Concomitant]
     Dosage: UNK UNK, QD , FREQUENCY TIME : 1 DAY , DURATION : 10 DAYS
     Dates: start: 20191020, end: 20191029
  198. MYCOSTATIN [Concomitant]
     Active Substance: NYSTATIN
     Indication: Tongue coated
     Dosage: 1 DOSAGE FORM , ROUTE OF ADMINISTRATION : ORAL .THERAPY START  DATE  : NASK , UNIT DOSE : 1 DF
     Route: 048
     Dates: end: 20190104
  199. MYCOSTATIN [Concomitant]
     Active Substance: NYSTATIN
     Indication: Prophylaxis
     Dates: start: 20191116, end: 20191223
  200. MYCOSTATIN [Concomitant]
     Active Substance: NYSTATIN
     Dates: start: 20190104
  201. MYCOSTATIN [Concomitant]
     Active Substance: NYSTATIN
     Dates: start: 20191116, end: 20191220
  202. INFLUENZA VIRUS VACCINE [Concomitant]
     Active Substance: INFLUENZA VIRUS VACCINE
     Indication: Prophylaxis
     Dosage: UNK ROUTE OF ADMINISTRATION : UNKNOWN , DURATION : 1 DAYS
     Route: 065
     Dates: start: 20191112, end: 20191112
  203. METOPROLOL [Concomitant]
     Active Substance: METOPROLOL
     Indication: Hypertension
     Dosage: UNIT DOSE : 25 MILLIGRAM
  204. METOPROLOL [Concomitant]
     Active Substance: METOPROLOL
     Indication: Hypertension
     Dosage: 50 MILLIGRAM
  205. METOPROLOL [Concomitant]
     Active Substance: METOPROLOL
     Dosage: 100 MILLIGRAM
  206. METOPROLOL [Concomitant]
     Active Substance: METOPROLOL
     Dosage: 25 MILLIGRAM
  207. METOPROLOL [Concomitant]
     Active Substance: METOPROLOL
     Dosage: 50 MILLIGRAM, QD
  208. METOPROLOL [Concomitant]
     Active Substance: METOPROLOL
     Dosage: 50 MILLIGRAM, QD
  209. METOPROLOL [Concomitant]
     Active Substance: METOPROLOL
     Dosage: 25 MILLIGRAM
  210. METOPROLOL [Concomitant]
     Active Substance: METOPROLOL
     Dosage: 50 MILLIGRAM, QD
  211. METOPROLOL [Concomitant]
     Active Substance: METOPROLOL
  212. MAGNESIUM OXIDE [Concomitant]
     Active Substance: MAGNESIUM OXIDE
     Indication: Malnutrition
     Dosage: UNK UNK, BID ROUTE OF ADMINISTRATION : ORAL ., DURATION : 281 DAYS
     Route: 048
     Dates: start: 20190103, end: 20191011
  213. COTRIMOXAZOLE [Concomitant]
     Active Substance: SULFAMETHOXAZOLE\TRIMETHOPRIM
     Indication: Antifungal prophylaxis
     Dosage: 480 MILLIGRAM DAILY; 480 MILLIGRAM, OD , ROUTE OF ADMINISTRATION : ORAL , DURATION : 424 DAYS
     Route: 048
     Dates: start: 20180817, end: 20191015
  214. CENTRUM PERFORMANCE [ASCORBIC ACID;BETACAROTENE;BIOTIN;CALCIUM;CHROMIU [Concomitant]
     Indication: Prophylaxis
     Dosage: 1 DOSAGE FORMS DAILY; 1 DOSAGE FORM, QD , ROUTE OF ADMINISTRATION : ORAL ., THERAPY END DATE NASK
     Route: 048
     Dates: start: 20190104
  215. ASPIRIN [Concomitant]
     Active Substance: ASPIRIN
     Indication: Anaemia
     Dosage: 75 MILLIGRAM DAILY; 75 MILLIGRAM, QD
  216. ASPIRIN [Concomitant]
     Active Substance: ASPIRIN
     Indication: Prophylaxis
  217. THIAMINE [Concomitant]
     Active Substance: THIAMINE
     Indication: Product used for unknown indication
     Dosage: 300 MILLIGRAM DAILY; 300 MILLIGRAM, QD , DURATION : 8 DAY
     Dates: start: 20190105, end: 20190112
  218. Altraplen compact [Concomitant]
     Indication: Malnutrition
     Dosage: UNK
     Dates: start: 20191117
  219. SODIUM FLUORIDE [Concomitant]
     Active Substance: SODIUM FLUORIDE
     Indication: Malnutrition
     Dosage: 90 ML DAILY; 90 MILLILITRE, QD , ROUTE OF ADMINISTRATION : ORAL ., THERAPY END DATE NASK
     Route: 048
     Dates: start: 20190103
  220. ZINC SULFATE [Concomitant]
     Active Substance: ZINC SULFATE
     Indication: Malnutrition
     Dosage: UNK, BID ROUTE OF ADMINISTRATION : ORAL , FREQUENCY TIME : 1 DAY , DURATION : 281 DAYS
     Route: 048
     Dates: start: 20190103, end: 20191011
  221. VALACYCLOVIR HYDROCHLORIDE [Concomitant]
     Active Substance: VALACYCLOVIR HYDROCHLORIDE
     Indication: Prophylaxis
     Dosage: 500 MILLIGRAM DAILY; 500 MILLIGRAM, OD , ROUTE OF ADMINISTRATION : ORAL , THERAPY END DATE  NASK
     Route: 048
     Dates: start: 20190817
  222. Solpadol [Concomitant]
     Indication: Product used for unknown indication
     Dosage: UNK
  223. MANGANESE SULFATE [Concomitant]
     Active Substance: MANGANESE SULFATE
     Indication: Malnutrition
     Dosage: UNK UNK, BID ROUTE OF ADMINISTRATION : ORAL , FREQUENCY TIME : 1 DAY , DURATION : 281 DAYS
     Route: 048
     Dates: start: 20190103, end: 20191011
  224. DECAPEPTYL (ACETATE) [Concomitant]
     Active Substance: TRIPTORELIN ACETATE
     Indication: Prostate cancer
     Dosage: UNIT DOSE : 18.247 MILLIGRAM , ROUTE OF ADMINISTRATION : UNKNOWN .THERAPY START DATE AND THERAPY END
  225. DECAPEPTYL (ACETATE) [Concomitant]
     Active Substance: TRIPTORELIN ACETATE
     Dosage: 45 MILLIGRAM, (1 DOSE YEARLY, 11.25 MG) ROUTE OF ADMINISTRATION : UNKNOWN , UNIT DOSE : 45 MG , FREQ
     Dates: start: 20190515
  226. CHLORHEXIDINE [Concomitant]
     Active Substance: CHLORHEXIDINE
     Indication: Tongue coated
     Dosage: 30 ML DAILY; 10 MILLILITER, TID (30 MILLILITER)ROUTE OF ADMINISTRATION : ORAL ., UNIT DOSE : 30 ML ,
     Route: 048
     Dates: start: 20191116, end: 20191220
  227. FOLIC ACID [Concomitant]
     Active Substance: FOLIC ACID
     Indication: Anaemia
     Dosage: 5 MILLIGRAM DAILY; 5 MILLIGRAM, QD, ROUTE OF ADMINISTRATION : ORAL , THERAPY START DATE  : NASK ,  T
     Route: 048
  228. DIETARY SUPPLEMENT [Concomitant]
     Active Substance: DIETARY SUPPLEMENT
     Indication: Malnutrition
     Dosage: UNK UNK, QD, FREQUENCY TIME : 1 DAY  , DURATION : 301 DAYS
     Dates: start: 20190102, end: 20191029
  229. DIETARY SUPPLEMENT [Concomitant]
     Active Substance: DIETARY SUPPLEMENT
     Dosage: UNK UNK, QD, DURATION :313 DAYS, FREQUENCY TIME : 1 DAY
     Dates: start: 20190103, end: 20191111
  230. MEGACE [Concomitant]
     Active Substance: MEGESTROL ACETATE
     Indication: Malnutrition
     Dosage: 15 ML DAILY; 15 MILLILITER, QD, ROUTE OF ADMINISTRATION : ORAL , THERAPY END DATE : NASK
     Route: 048
     Dates: start: 20191019
  231. MEGACE [Concomitant]
     Active Substance: MEGESTROL ACETATE
     Dosage: 15 MILLILITER, QD, ROUTE OF ADMINISTRATION : ORAL , FREQUENCY TIME : 1 DAY
     Dates: start: 20191011
  232. MEGACE [Concomitant]
     Active Substance: MEGESTROL ACETATE
     Dosage: 7.5 ML DAILY; 7.5 MILLILITER, QD ,ROUTE OF ADMINISTRATION : ORAL , FREQUENCY TIME : 1 DAY
     Route: 048
     Dates: start: 20191011
  233. CLARITHROMYCIN [Concomitant]
     Active Substance: CLARITHROMYCIN
     Indication: Product used for unknown indication
     Dosage: 500 MILLIGRAM, ROUTE OF ADMINISTRATION : UNKNOWN , DURATION : 4 DAYS, UNIT DOSE : 500MG
     Route: 065
     Dates: start: 20190106, end: 20190109
  234. CUPRIC SULFATE ANHYDROUS [Concomitant]
     Active Substance: CUPRIC SULFATE ANHYDROUS
     Indication: Malnutrition
     Dosage: UNK UNK, BID, ROUTE OF ADMINISTRATION : ORAL , FREQUENCY TIME : 1 DAY, DURATION : 281 DAYS
     Route: 048
     Dates: start: 20190103, end: 20191011
  235. CARBOHYDRATES\FATTY ACIDS\MINERALS\PROTEIN\VITAMINS [Concomitant]
     Active Substance: CARBOHYDRATES\FATTY ACIDS\MINERALS\PROTEIN\VITAMINS
     Indication: Malnutrition
     Dosage: UNK UNK, QD, ROUTE OF ADMINISTRATION : ORAL , DURATION : 300 DAYS, FREQUENCY TIME : 1 DAY
     Route: 048
     Dates: start: 20190102, end: 20191029
  236. CARBOHYDRATES\FATTY ACIDS\MINERALS\PROTEIN\VITAMINS [Concomitant]
     Active Substance: CARBOHYDRATES\FATTY ACIDS\MINERALS\PROTEIN\VITAMINS
     Dosage: UNK UNK, BID, ROUTE OF ADMINISTRATION : ORAL , FREQUENCY TIME : 1 DAY, DURATION : 281 DAYS
     Route: 048
     Dates: start: 20190103, end: 20191011
  237. CALCIUM CARBONATE [Concomitant]
     Active Substance: CALCIUM CARBONATE
     Indication: Malnutrition
     Dosage: UNK UNK, BID, ROUTE OF ADMINISTRATION : ORAL , DURATION : 281 DAYS, FREQUENCY TIME : 1 DAY
     Route: 048
     Dates: start: 20190103, end: 20191011

REACTIONS (10)
  - Platelet count decreased [Fatal]
  - Thrombocytopenia [Fatal]
  - Anaemia [Recovered/Resolved]
  - Neutropenia [Recovered/Resolved]
  - Respiratory tract infection [Fatal]
  - COVID-19 [Fatal]
  - Respiratory tract infection viral [Fatal]
  - Respiratory tract infection bacterial [Fatal]
  - Pulmonary embolism [Fatal]
  - Intentional product use issue [Unknown]

NARRATIVE: CASE EVENT DATE: 20181008
